FAERS Safety Report 10659420 (Version 2)
Quarter: 2015Q1

REPORT INFORMATION
  Report Type: Report from Study
  Country: PL (occurrence: PL)
  Receive Date: 20141217
  Receipt Date: 20150106
  Transmission Date: 20150720
  Serious: Yes (Death)
  Sender: FDA-Public Use
  Company Number: PL-SA-2014SA173349

PATIENT
  Age: 59 Year
  Sex: Male

DRUGS (17)
  1. TARDYFERON-FOL [Concomitant]
     Indication: ANAEMIA
     Dates: start: 20140820
  2. CONTROLOC [Concomitant]
     Active Substance: PANTOPRAZOLE SODIUM
     Indication: GASTRIC CANCER
     Dates: start: 20140710
  3. DOCETAXEL. [Suspect]
     Active Substance: DOCETAXEL
     Indication: HER-2 POSITIVE GASTRIC CANCER
     Route: 042
     Dates: start: 20140924, end: 20141107
  4. FLUCONAZOLE. [Concomitant]
     Active Substance: FLUCONAZOLE
     Indication: STOMATITIS
     Dates: start: 20140930
  5. ARANESP [Concomitant]
     Active Substance: DARBEPOETIN ALFA
     Indication: ANAEMIA
     Dates: start: 20141017
  6. BISOCARD [Concomitant]
     Active Substance: BISOPROLOL
     Indication: HYPERTENSION
  7. RANIGAST [Concomitant]
     Indication: PREMEDICATION
     Dates: start: 20140924
  8. DICLOBERL [Concomitant]
     Active Substance: DICLOFENAC SODIUM
     Indication: PAIN
  9. DICLOBERL [Concomitant]
     Active Substance: DICLOFENAC SODIUM
     Indication: OSTEOARTHRITIS
  10. NEULASTA [Concomitant]
     Active Substance: PEGFILGRASTIM
     Indication: NEUTROPENIA
     Dates: start: 20141019
  11. MEGESTROL ACETATE. [Concomitant]
     Active Substance: MEGESTROL ACETATE
     Indication: DECREASED APPETITE
     Dates: start: 20141024
  12. SOLCOSERYL [Concomitant]
     Active Substance: SOLCOSERYL
     Indication: MUCOSAL INFLAMMATION
     Dates: start: 20141029
  13. LOPERAMIDE [Concomitant]
     Active Substance: LOPERAMIDE
     Indication: DIARRHOEA
     Dates: start: 20141019
  14. SACCHAROMYCES BOULARDII [Concomitant]
     Active Substance: SACCHAROMYCES CEREVISIAE
     Indication: DIARRHOEA
     Dates: start: 20141023, end: 20141029
  15. LACIPIL [Concomitant]
     Active Substance: LACIDIPINE
     Indication: HYPERTENSION
  16. GLICLADA [Concomitant]
     Active Substance: GLICLAZIDE
     Indication: DIABETES MELLITUS
  17. DEXAVEN [Concomitant]
     Active Substance: DEXAMETHASONE
     Indication: PREMEDICATION
     Dates: start: 20140924

REACTIONS (1)
  - Pneumonia [Fatal]

NARRATIVE: CASE EVENT DATE: 20141118
